FAERS Safety Report 8236248-8 (Version None)
Quarter: 2012Q1

REPORT INFORMATION
  Report Type: 
  Country: None (occurrence: None)
  Receive Date: 20120327
  Receipt Date: 20120320
  Transmission Date: 20120608
  Serious: Yes (Death, Other)
  Sender: FDA-Public Use
  Company Number: TR-PAR PHARMACEUTICAL, INC-2010SCPR002332

PATIENT

DRUGS (3)
  1. FLUOXETINE [Suspect]
     Dosage: 20 MG, PER DAY
     Route: 065
  2. FLUOXETINE [Suspect]
     Dosage: 40 MG, PER DAY
     Route: 065
  3. FLUOXETINE [Suspect]
     Indication: DEPRESSION
     Dosage: 20 MG, PER DAY
     Route: 065

REACTIONS (7)
  - LOWER LIMB FRACTURE [None]
  - BLOOD FOLLICLE STIMULATING HORMONE INCREASED [None]
  - RADIUS FRACTURE [None]
  - HUMERUS FRACTURE [None]
  - OSTEOPENIA [None]
  - ULNA FRACTURE [None]
  - BLOOD LUTEINISING HORMONE INCREASED [None]
